FAERS Safety Report 20160467 (Version 1)
Quarter: 2021Q4

REPORT INFORMATION
  Report Type: Spontaneous
  Country: US (occurrence: US)
  Receive Date: 20211208
  Receipt Date: 20211208
  Transmission Date: 20220304
  Serious: Yes (Other)
  Sender: FDA-Public Use
  Company Number: US-PFIZER INC-202101656040

PATIENT
  Age: 60 Year
  Sex: Female

DRUGS (5)
  1. PENTOSTATIN [Suspect]
     Active Substance: PENTOSTATIN
     Dosage: UNK
  2. JAKAFI [Suspect]
     Active Substance: RUXOLITINIB
     Indication: T-cell prolymphocytic leukaemia
     Dosage: UNK
  3. CAMPATH [Suspect]
     Active Substance: ALEMTUZUMAB
     Dosage: UNK
  4. BENDAMUSTINE [Suspect]
     Active Substance: BENDAMUSTINE
     Dosage: UNK
  5. VENETOCLAX [Concomitant]
     Active Substance: VENETOCLAX
     Dosage: UNK

REACTIONS (3)
  - Thrombocytopenia [Unknown]
  - Neoplasm progression [Unknown]
  - Off label use [Unknown]
